FAERS Safety Report 5095074-1 (Version None)
Quarter: 2006Q3

REPORT INFORMATION
  Report Type: 
  Country: None (occurrence: None)
  Receive Date: 20060901
  Receipt Date: 20060607
  Transmission Date: 20061208
  Serious: Yes (Hospitalization, Other)
  Sender: FDA-Public Use
  Company Number: US-AVENTIS-200615085US

PATIENT
  Sex: Male

DRUGS (3)
  1. KETEK [Suspect]
     Indication: UPPER RESPIRATORY TRACT INFECTION
     Route: 048
     Dates: start: 20060510
  2. LEVOXYL [Concomitant]
  3. LIPITOR [Concomitant]

REACTIONS (42)
  - ABDOMINAL PAIN [None]
  - ALANINE AMINOTRANSFERASE INCREASED [None]
  - ANAEMIA [None]
  - ANGIONEUROTIC OEDEMA [None]
  - ASPARTATE AMINOTRANSFERASE INCREASED [None]
  - ATELECTASIS [None]
  - BILIRUBIN CONJUGATED INCREASED [None]
  - BLINDNESS UNILATERAL [None]
  - BLOOD ALBUMIN DECREASED [None]
  - BLOOD BILIRUBIN INCREASED [None]
  - BLOOD BILIRUBIN UNCONJUGATED INCREASED [None]
  - BLOOD IRON DECREASED [None]
  - BLOOD POTASSIUM DECREASED [None]
  - CHOLELITHIASIS [None]
  - COLITIS [None]
  - COUGH [None]
  - DRY EYE [None]
  - EOSINOPHILIA [None]
  - FLUSHING [None]
  - HAEMATOCRIT DECREASED [None]
  - HAEMOGLOBIN DECREASED [None]
  - HEPATIC STEATOSIS [None]
  - HEPATITIS CHOLESTATIC [None]
  - HEPATOCELLULAR DAMAGE [None]
  - IRON BINDING CAPACITY TOTAL DECREASED [None]
  - JAUNDICE [None]
  - LIVER FUNCTION TEST ABNORMAL [None]
  - MUSCULOSKELETAL DISCOMFORT [None]
  - NAUSEA [None]
  - PELVIC FLUID COLLECTION [None]
  - PLEURAL EFFUSION [None]
  - PRURITUS [None]
  - PRURITUS GENERALISED [None]
  - PYREXIA [None]
  - RASH [None]
  - RASH ERYTHEMATOUS [None]
  - RED BLOOD CELL COUNT DECREASED [None]
  - RED BLOOD CELL SEDIMENTATION RATE INCREASED [None]
  - URTICARIA [None]
  - VASCULITIS [None]
  - VIRAL INFECTION [None]
  - VOMITING [None]
